FAERS Safety Report 10171144 (Version 1)
Quarter: 2014Q2

REPORT INFORMATION
  Report Type: Spontaneous
  Country: US (occurrence: None)
  Receive Date: 20140513
  Receipt Date: 20140513
  Transmission Date: 20141212
  Serious: Yes (Disabling)
  Sender: FDA-Public Use
  Company Number: None

PATIENT
  Sex: Female
  Weight: 78.93 kg

DRUGS (1)
  1. PRAVASTATIN [Suspect]

REACTIONS (8)
  - Muscular weakness [None]
  - Dizziness [None]
  - Fall [None]
  - Upper limb fracture [None]
  - Neuropathy peripheral [None]
  - Visual acuity reduced [None]
  - Hypoacusis [None]
  - No therapeutic response [None]
